FAERS Safety Report 4590767-4 (Version None)
Quarter: 2005Q1

REPORT INFORMATION
  Report Type: 
  Country: None (occurrence: None)
  Receive Date: 20050224
  Receipt Date: 20050217
  Transmission Date: 20050727
  Serious: Yes (Other)
  Sender: FDA-Public Use
  Company Number: US-MERCK-0502USA02313

PATIENT
  Age: 36 Year
  Sex: Male

DRUGS (2)
  1. VIOXX [Suspect]
     Indication: POST PROCEDURAL PAIN
     Route: 048
  2. VITAMINS (UNSPECIFIED) [Concomitant]
     Route: 065

REACTIONS (1)
  - RETINAL VEIN OCCLUSION [None]
